FAERS Safety Report 20470650 (Version 1)
Quarter: 2022Q1

REPORT INFORMATION
  Report Type: Spontaneous
  Country: US (occurrence: None)
  Receive Date: 20220211
  Receipt Date: 20220211
  Transmission Date: 20220424
  Serious: Yes (Death)
  Sender: FDA-Public Use
  Company Number: None

PATIENT
  Age: 61 Year
  Sex: Female

DRUGS (1)
  1. OPSUMIT [Suspect]
     Active Substance: MACITENTAN
     Indication: Pulmonary arterial hypertension
     Dosage: FREQUENCY : DAILY;?
     Route: 048
     Dates: start: 20210802, end: 20220203

REACTIONS (4)
  - Acute respiratory failure [None]
  - Right ventricular failure [None]
  - Scleroderma [None]
  - COVID-19 [None]

NARRATIVE: CASE EVENT DATE: 20220203
